FAERS Safety Report 12805093 (Version 1)
Quarter: 2016Q4

REPORT INFORMATION
  Report Type: Spontaneous
  Country: US (occurrence: US)
  Receive Date: 20161004
  Receipt Date: 20161004
  Transmission Date: 20170207
  Serious: No
  Sender: FDA-Public Use
  Company Number: ALCN2016US006732

PATIENT
  Sex: Female

DRUGS (2)
  1. ICAPS LO [Suspect]
     Active Substance: MINERALS\VITAMINS
     Indication: PRODUCT USED FOR UNKNOWN INDICATION
     Dosage: UNK
     Route: 048
  2. ICAPS LO [Suspect]
     Active Substance: MINERALS\VITAMINS
     Route: 048

REACTIONS (1)
  - Expired product administered [Unknown]
